FAERS Safety Report 6194052-9 (Version None)
Quarter: 2009Q2

REPORT INFORMATION
  Report Type: 
  Country: None (occurrence: None)
  Receive Date: 20090513
  Receipt Date: 20090504
  Transmission Date: 20091009
  Serious: Yes (Hospitalization)
  Sender: FDA-Public Use
  Company Number: 1-18328181

PATIENT
  Age: 86 Year
  Sex: Male

DRUGS (3)
  1. METOCLOPRAMIDE [Suspect]
     Dosage: 10 MG, 4 TIMES DAILY, ORAL
     Route: 048
  2. LEVOTHYROXINE SODIUM [Concomitant]
  3. LISINOPRIL [Concomitant]

REACTIONS (3)
  - BLOOD CREATININE INCREASED [None]
  - LONG QT SYNDROME [None]
  - TORSADE DE POINTES [None]
